FAERS Safety Report 14369629 (Version 1)
Quarter: 2018Q1

REPORT INFORMATION
  Report Type: Spontaneous
  Country: US (occurrence: US)
  Receive Date: 20180110
  Receipt Date: 20180110
  Transmission Date: 20180509
  Serious: Yes (Hospitalization, Other)
  Sender: FDA-Public Use
  Company Number: US-ROCHE-2048543

PATIENT
  Age: 66 Year
  Sex: Female
  Weight: 88.08 kg

DRUGS (3)
  1. KLONOPIN [Suspect]
     Active Substance: CLONAZEPAM
     Indication: RESTLESS LEGS SYNDROME
     Dosage: AT NIGHT
     Route: 065
  2. TIZANIDINE. [Concomitant]
     Active Substance: TIZANIDINE
     Indication: RESTLESS LEGS SYNDROME
     Dosage: AT NIGHT
     Route: 065
  3. CLONAZEPAM. [Suspect]
     Active Substance: CLONAZEPAM
     Indication: RESTLESS LEGS SYNDROME
     Dosage: AT NIGHT
     Route: 065

REACTIONS (12)
  - Respiratory arrest [Unknown]
  - Electrolyte depletion [Recovered/Resolved]
  - Diarrhoea [Recovered/Resolved]
  - Off label use [Unknown]
  - Narcolepsy [Not Recovered/Not Resolved]
  - Withdrawal syndrome [Recovered/Resolved]
  - Intentional product use issue [Unknown]
  - Renal failure [Recovered/Resolved]
  - Bacterial abdominal infection [Recovered/Resolved]
  - Vomiting [Recovered/Resolved]
  - Hypertension [Not Recovered/Not Resolved]
  - Nightmare [Unknown]

NARRATIVE: CASE EVENT DATE: 201705
